FAERS Safety Report 10420711 (Version 1)
Quarter: 2014Q3

REPORT INFORMATION
  Report Type: Spontaneous
  Country: US (occurrence: None)
  Receive Date: 20140708
  Receipt Date: 20140708
  Transmission Date: 20150326
  Serious: Yes (Other)
  Sender: FDA-Public Use
  Company Number: US-JNJFOC-20130809502

PATIENT
  Age: 63 Year
  Sex: Male

DRUGS (5)
  1. NEUPOGEN (FILGRASTIM) [Concomitant]
     Active Substance: FILGRASTIM
  2. TYLENOL [Concomitant]
     Active Substance: ACETAMINOPHEN
  3. COMPAZINE [Concomitant]
     Active Substance: PROCHLORPERAZINE MALEATE
  4. ZOFRAN (ONDANSETRON) [Concomitant]
  5. DACOGEN [Suspect]
     Active Substance: DECITABINE
     Indication: MYELODYSPLASTIC SYNDROME
     Dosage: 20 MG/M2, INTRAVENOUS DRIP
     Route: 041
     Dates: start: 20130812

REACTIONS (1)
  - Rash [None]

NARRATIVE: CASE EVENT DATE: 20130812
